FAERS Safety Report 6859616-5 (Version None)
Quarter: 2010Q3

REPORT INFORMATION
  Report Type: 
  Country: None (occurrence: None)
  Receive Date: 20100719
  Receipt Date: 20080510
  Transmission Date: 20110219
  Serious: No
  Sender: FDA-Public Use
  Company Number: US-PFIZER INC-2008019668

PATIENT
  Sex: Female
  Weight: 95.5 kg

DRUGS (16)
  1. CHANTIX [Suspect]
     Indication: SMOKING CESSATION THERAPY
     Route: 048
     Dates: start: 20080215, end: 20080229
  2. PAXIL [Concomitant]
  3. RISPERDAL [Concomitant]
  4. TRAZODONE HYDROCHLORIDE [Concomitant]
  5. CLONAZEPAM [Concomitant]
  6. PROTONIX [Concomitant]
  7. ALL OTHER THERAPEUTIC PRODUCTS [Concomitant]
  8. REGLAN [Concomitant]
  9. LIPITOR [Concomitant]
  10. GEMFIBROZIL [Concomitant]
  11. FLONASE [Concomitant]
  12. ULTRAM [Concomitant]
  13. COMBIVENT [Concomitant]
  14. ATENOLOL [Concomitant]
  15. RANITIDINE [Concomitant]
  16. BENTYL [Concomitant]
     Route: 048

REACTIONS (8)
  - ABDOMINAL DISCOMFORT [None]
  - ABDOMINAL DISTENSION [None]
  - ABDOMINAL PAIN [None]
  - DYSPEPSIA [None]
  - FLATULENCE [None]
  - INFLUENZA LIKE ILLNESS [None]
  - MALAISE [None]
  - NAUSEA [None]
